FAERS Safety Report 12469921 (Version 1)
Quarter: 2016Q2

REPORT INFORMATION
  Report Type: Spontaneous
  Country: US (occurrence: US)
  Receive Date: 20160615
  Receipt Date: 20160615
  Transmission Date: 20160815
  Serious: No
  Sender: FDA-Public Use
  Company Number: US-BAYER-2016-116889

PATIENT
  Sex: Female

DRUGS (2)
  1. CHLOR-TRIMETON 12 HOUR [Suspect]
     Active Substance: CHLORPHENIRAMINE MALEATE
     Indication: SINUS DISORDER
  2. CLARITIN [Suspect]
     Active Substance: LORATADINE

REACTIONS (2)
  - Product use issue [None]
  - Drug ineffective [None]
